FAERS Safety Report 7036130-8 (Version None)
Quarter: 2010Q4

REPORT INFORMATION
  Report Type: 
  Country: None (occurrence: None)
  Receive Date: 20101008
  Receipt Date: 20100111
  Transmission Date: 20110411
  Serious: No
  Sender: FDA-Public Use
  Company Number: US-BRISTOL-MYERS SQUIBB COMPANY-14929186

PATIENT
  Sex: Male

DRUGS (8)
  1. AVAPRO [Suspect]
     Indication: HYPERTENSION
     Dates: start: 20091201
  2. AMLODIPINE BESYLATE [Suspect]
  3. TEKTURNA [Concomitant]
  4. FISH OIL [Concomitant]
  5. ASCORBIC ACID [Concomitant]
  6. CENTRUM SILVER [Concomitant]
  7. MULTI-VITAMINS [Concomitant]
  8. VITAMIN D [Concomitant]

REACTIONS (1)
  - CONSTIPATION [None]
